FAERS Safety Report 19727242 (Version 1)
Quarter: 2021Q3

REPORT INFORMATION
  Report Type: Report from Study
  Country: None (occurrence: AU)
  Receive Date: 20210819
  Receipt Date: 20210819
  Transmission Date: 20211014
  Serious: Yes (Hospitalization)
  Sender: FDA-Public Use
  Company Number: AU-ABBVIE-21P-008-4038889-00

PATIENT
  Age: 75 Year
  Sex: Female
  Weight: 63.8 kg

DRUGS (17)
  1. HYDROXOCOBALAMIN [Concomitant]
     Active Substance: HYDROXOCOBALAMIN
     Indication: VITAMIN B12 DEFICIENCY
     Dates: start: 20210804, end: 20210808
  2. COLESTYRAMINE [Concomitant]
     Active Substance: CHOLESTYRAMINE
     Indication: MALABSORPTION
     Dates: start: 2012
  3. VALACICLOVIR [Concomitant]
     Active Substance: VALACYCLOVIR HYDROCHLORIDE
     Indication: ANTIVIRAL PROPHYLAXIS
     Dates: start: 20210724
  4. PARACETAMOL MODIFIED RELEASE [Concomitant]
     Indication: ARTHRALGIA
     Dates: start: 20210723, end: 20210810
  5. VENETOCLAX. [Suspect]
     Active Substance: VENETOCLAX
     Indication: ACUTE MYELOID LEUKAEMIA
     Route: 048
     Dates: start: 20210806
  6. TIMOLOL BIMATOPROST [Concomitant]
     Indication: GLAUCOMA
     Dates: start: 20210726
  7. POTASSIUM CHLORIDE 10MMOL IN SODIUM CHLORIDE [Concomitant]
     Indication: HYPOKALAEMIA
     Dates: start: 20210811, end: 20210811
  8. PANTOPRAZOLE [Concomitant]
     Active Substance: PANTOPRAZOLE
     Indication: PROPHYLAXIS
     Dates: start: 20210804
  9. OXYCODONE [Concomitant]
     Active Substance: OXYCODONE
     Indication: PAIN
     Dates: start: 20210726
  10. RISENDROATE [Concomitant]
     Indication: OSTEOPOROSIS
  11. SODIUM BICARBONATE. [Concomitant]
     Active Substance: SODIUM BICARBONATE
     Indication: DENTAL DISORDER PROPHYLAXIS
     Dates: start: 20210803
  12. ALLOPURINOL. [Concomitant]
     Active Substance: ALLOPURINOL
     Indication: TUMOUR LYSIS SYNDROME
     Dates: start: 20210803
  13. HYOSCINE BUTYLBROMIDE [Concomitant]
     Active Substance: BUTYLSCOPOLAMINE BROMIDE
     Indication: ABDOMINAL DISCOMFORT
     Dates: start: 20210803
  14. POTASSIUM CHLORIDE. [Concomitant]
     Active Substance: POTASSIUM CHLORIDE
     Indication: HYPOKALAEMIA
     Dates: start: 20210810
  15. COLECALCIFEROL VITAMIN D3 [Concomitant]
     Indication: SUPPLEMENTATION THERAPY
     Dates: start: 20210724
  16. DEXTRAN 70 JYPROMELLOSE EYE DROP [Concomitant]
     Indication: GLAUCOMA
     Dates: start: 20210723
  17. POSACONAZOLE MODIFIED RELEASE [Concomitant]
     Indication: ANTIFUNGAL PROPHYLAXIS
     Dates: start: 20210811

REACTIONS (1)
  - Pyrexia [Not Recovered/Not Resolved]

NARRATIVE: CASE EVENT DATE: 20210811
